FAERS Safety Report 8901077 (Version 3)
Quarter: 2013Q1

REPORT INFORMATION
  Report Type: Spontaneous
  Country: US (occurrence: US)
  Receive Date: 20121109
  Receipt Date: 20130131
  Transmission Date: 20140127
  Serious: Yes (Hospitalization, Other)
  Sender: FDA-Public Use
  Company Number: US-ASTRAZENECA-2012SE84335

PATIENT
  Age: 74 Year
  Sex: Female

DRUGS (15)
  1. PRILOSEC [Suspect]
     Indication: PEPTIC ULCER
     Route: 048
     Dates: start: 200708
  2. PRILOSEC [Suspect]
     Indication: PEPTIC ULCER
     Route: 048
     Dates: start: 20101019
  3. NEXIUM [Suspect]
     Indication: PEPTIC ULCER
     Route: 048
     Dates: start: 200708, end: 2009
  4. PLAVIX [Suspect]
     Route: 048
     Dates: start: 20101019
  5. PLAVIX [Suspect]
     Route: 048
     Dates: start: 20101019, end: 201108
  6. ASPIRIN [Suspect]
     Route: 048
     Dates: start: 20101019
  7. DIOVAN [Concomitant]
     Dates: start: 20101019
  8. GLUCOVANCE [Concomitant]
     Dosage: 5/500
     Dates: start: 20101019
  9. LEVSIN [Concomitant]
     Dates: start: 20101019
  10. VERAPAMIL SR [Concomitant]
     Dates: start: 20101019
  11. FERROUS SULFATE [Concomitant]
     Dates: start: 20101021
  12. GLYBURIDE [Concomitant]
     Dates: start: 20101021
  13. NULEV [Concomitant]
     Indication: ABDOMINAL PAIN
     Dosage: HALF TABLET TO TWO TABLETS AT A TIME AS NEEDED
     Dates: start: 20061128
  14. FOLATE [Concomitant]
     Dates: start: 20111228
  15. MELOXICAM [Concomitant]
     Dates: start: 20111228

REACTIONS (53)
  - Gastrointestinal disorder [Unknown]
  - Vitamin B12 deficiency [Unknown]
  - Abdominal pain [Unknown]
  - Oesophageal disorder [Unknown]
  - Gastroenteritis [Unknown]
  - Nervous system disorder [Unknown]
  - Goitre [Unknown]
  - Rectal haemorrhage [Unknown]
  - Occult blood positive [Unknown]
  - Decreased appetite [Unknown]
  - Diabetes mellitus [Unknown]
  - Hypertension [Unknown]
  - Peripheral vascular disorder [Unknown]
  - Epistaxis [Unknown]
  - Immune system disorder [Unknown]
  - Thrombosis [Unknown]
  - Weight decreased [Unknown]
  - Protein total decreased [Unknown]
  - Renal impairment [Unknown]
  - Full blood count decreased [Unknown]
  - Cardiovascular disorder [Unknown]
  - Dyspepsia [Unknown]
  - Angina unstable [Unknown]
  - Coronary artery stenosis [Unknown]
  - Dyspnoea [Unknown]
  - Gastrointestinal haemorrhage [Unknown]
  - Renal failure acute [Unknown]
  - Platelet disorder [Unknown]
  - Coagulopathy [Unknown]
  - Iron deficiency anaemia [Unknown]
  - Blood urea increased [Recovered/Resolved]
  - Blood albumin decreased [Unknown]
  - Oesophageal spasm [Unknown]
  - Hiatus hernia [Unknown]
  - Gastritis [Unknown]
  - Irritable bowel syndrome [Unknown]
  - Large intestine polyp [Unknown]
  - Thrombotic thrombocytopenic purpura [Unknown]
  - Acute coronary syndrome [Unknown]
  - Pelvic pain [Unknown]
  - Back pain [Unknown]
  - Muscle strain [Unknown]
  - Spinal osteoarthritis [Unknown]
  - Bone marrow disorder [Unknown]
  - Amylase increased [Recovered/Resolved]
  - Bone pain [Unknown]
  - Ulcer [Unknown]
  - Asthenia [Unknown]
  - Arthralgia [Unknown]
  - Confusional state [Unknown]
  - Constipation [Unknown]
  - Anorectal disorder [Unknown]
  - Gastric disorder [Unknown]
